FAERS Safety Report 6664417-7 (Version None)
Quarter: 2010Q2

REPORT INFORMATION
  Report Type: 
  Country: None (occurrence: None)
  Receive Date: 20100401
  Receipt Date: 20100329
  Transmission Date: 20101027
  Serious: Yes (Death)
  Sender: FDA-Public Use
  Company Number: PHHY2010JP19004

PATIENT
  Sex: Male
  Weight: 70 kg

DRUGS (14)
  1. SIMULECT [Suspect]
     Indication: RENAL TRANSPLANT
     Dosage: 20 MG, ONCE/SINGLE
     Route: 042
     Dates: start: 20090616, end: 20090616
  2. SIMULECT [Suspect]
     Dosage: 20 MG, ONCE/SINGLE
     Route: 042
     Dates: start: 20090620, end: 20090620
  3. NEORAL [Suspect]
     Indication: RENAL TRANSPLANT
     Dosage: 150 MG DAILY
     Route: 048
     Dates: start: 20090513, end: 20090615
  4. NEORAL [Suspect]
     Dosage: 200 MG DAILY
     Route: 048
     Dates: start: 20090618
  5. NEORAL [Suspect]
     Dosage: 100 MG/DAY
     Dates: end: 20091124
  6. SOLU-MEDROL [Suspect]
     Indication: RENAL TRANSPLANT
     Dosage: 500 MG DAILY
     Route: 042
     Dates: start: 20090616, end: 20090622
  7. SOLU-MEDROL [Suspect]
     Dosage: 500 MG DAILY
     Route: 042
     Dates: start: 20091214
  8. SOLU-MEDROL [Suspect]
     Dosage: 1000 MG DAILY
     Route: 042
     Dates: start: 20100105, end: 20100106
  9. CELLCEPT [Suspect]
     Indication: RENAL TRANSPLANT
     Dosage: 1000 MG DAILY
     Route: 048
     Dates: start: 20090513, end: 20090615
  10. CELLCEPT [Suspect]
     Dosage: 1000 MG DAILY
     Route: 048
     Dates: start: 20090618, end: 20091116
  11. SANDIMMUNE [Concomitant]
     Indication: RENAL TRANSPLANT
     Dosage: 140 MG, UNK
     Route: 042
     Dates: start: 20090616, end: 20090617
  12. MEDROL [Concomitant]
     Indication: RENAL TRANSPLANT
     Dosage: 40 MG, UNK
     Route: 048
     Dates: start: 20090623, end: 20091118
  13. PREDNISOLONE [Concomitant]
     Indication: RENAL TRANSPLANT
     Dosage: 80 MG, UNK
     Route: 048
     Dates: start: 20091118, end: 20100106
  14. RITUXAN [Concomitant]
     Dosage: 500 MG, UNK
     Route: 042
     Dates: start: 20090512, end: 20090512

REACTIONS (7)
  - BLOOD BETA-D-GLUCAN INCREASED [None]
  - CEREBRAL INFARCTION [None]
  - DEPRESSED LEVEL OF CONSCIOUSNESS [None]
  - MECHANICAL VENTILATION [None]
  - PNEUMOCYSTIS JIROVECI PNEUMONIA [None]
  - PYREXIA [None]
  - RESPIRATORY FAILURE [None]
